FAERS Safety Report 6060181-3 (Version None)
Quarter: 2009Q1

REPORT INFORMATION
  Report Type: 
  Country: None (occurrence: None)
  Receive Date: 20090128
  Receipt Date: 20090114
  Transmission Date: 20090719
  Serious: Yes (Life-Threatening)
  Sender: FDA-Public Use
  Company Number: IDA-00178

PATIENT
  Age: 72 Year
  Sex: Female

DRUGS (3)
  1. PROPRANOLOL [Suspect]
     Indication: ISCHAEMIC HEART DISEASE PROPHYLAXIS
     Dosage: ORAL  FORMULATION: TABLET
     Route: 048
     Dates: start: 19970101
  2. SPLENDIL (FELODIPINE); 5 MG [Suspect]
     Indication: ISCHAEMIC HEART DISEASE PROPHYLAXIS
     Dosage: 5 MG, DAILY
     Dates: start: 19970101, end: 20050101
  3. SPLENDIL (FELODIPINE) 10 MG [Suspect]
     Indication: ISCHAEMIC HEART DISEASE PROPHYLAXIS
     Dosage: 10 MG , DAILY

REACTIONS (4)
  - ANXIETY [None]
  - ASTHMA [None]
  - RESPIRATORY ARREST [None]
  - TACHYCARDIA [None]
